FAERS Safety Report 5398541-6 (Version None)
Quarter: 2007Q3

REPORT INFORMATION
  Report Type: 
  Country: None (occurrence: None)
  Receive Date: 20070725
  Receipt Date: 20070713
  Transmission Date: 20080115
  Serious: Yes (Life-Threatening)
  Sender: FDA-Public Use
  Company Number: GXKR2007US06039

PATIENT
  Age: 58 Year
  Sex: Female

DRUGS (5)
  1. METRONIDAZOLE (NGX) (METRONIDAZOLE) 0.75% [Suspect]
     Indication: VAGINAL INFECTION
     Dosage: ONCE/SINGLE, VAGINAL
     Route: 067
  2. SERTRALINE [Concomitant]
  3. QUETIAPINE (QUIETIAPINE) [Concomitant]
  4. LORAZEPAM [Concomitant]
  5. ZOLPIDEM TARTRATE [Concomitant]

REACTIONS (9)
  - BLOOD PRESSURE DIASTOLIC INCREASED [None]
  - CHEST PAIN [None]
  - HAEMATURIA [None]
  - HEADACHE [None]
  - MICROANGIOPATHIC HAEMOLYTIC ANAEMIA [None]
  - PYREXIA [None]
  - RENAL FAILURE [None]
  - THROMBOTIC THROMBOCYTOPENIC PURPURA [None]
  - VOMITING [None]
